FAERS Safety Report 5149026-3 (Version None)
Quarter: 2006Q4

REPORT INFORMATION
  Report Type: 
  Country: None (occurrence: None)
  Receive Date: 20061108
  Receipt Date: 20061025
  Transmission Date: 20070319
  Serious: Yes (Other)
  Sender: FDA-Public Use
  Company Number: 2006US-03981

PATIENT
  Age: 28 Year
  Sex: Female

DRUGS (3)
  1. ISOTRETINOIN [Suspect]
     Dosage: 2 MG, TID
     Dates: start: 20060618, end: 20060927
  2. BIRTH CONTROL PILLS [Concomitant]
  3. DIAPHRAGM [Concomitant]

REACTIONS (3)
  - DRUG EXPOSURE DURING PREGNANCY [None]
  - PREGNANCY ON ORAL CONTRACEPTIVE [None]
  - PREGNANCY WITH CONTRACEPTIVE DEVICE [None]
